FAERS Safety Report 4323827-3 (Version None)
Quarter: 2004Q1

REPORT INFORMATION
  Report Type: 
  Country: None (occurrence: None)
  Receive Date: 20040324
  Receipt Date: 20040324
  Transmission Date: 20041129
  Serious: Yes (Other)
  Sender: FDA-Public Use
  Company Number: None

PATIENT
  Age: 25 Year
  Sex: Female
  Weight: 60.782 kg

DRUGS (1)
  1. HYDROXYCHLOROQUINE SULFATE [Suspect]
     Indication: CONNECTIVE TISSUE DISORDER
     Dosage: 200 MG BID PO
     Route: 048

REACTIONS (2)
  - DYSPEPSIA [None]
  - PHARMACEUTICAL PRODUCT COMPLAINT [None]
